FAERS Safety Report 21884713 (Version 1)
Quarter: 2023Q1

REPORT INFORMATION
  Report Type: Spontaneous
  Country: JP (occurrence: JP)
  Receive Date: 20230119
  Receipt Date: 20230119
  Transmission Date: 20230418
  Serious: Yes (Other)
  Sender: FDA-Public Use
  Company Number: JP-BAYER-2023A003463

PATIENT
  Age: 78 Year
  Sex: Male

DRUGS (12)
  1. CIPROFLOXACIN [Suspect]
     Active Substance: CIPROFLOXACIN
     Indication: Serratia infection
  2. CIPROFLOXACIN [Suspect]
     Active Substance: CIPROFLOXACIN
     Indication: Pseudomonas infection
  3. CIPROFLOXACIN [Suspect]
     Active Substance: CIPROFLOXACIN
     Indication: Medical device site infection
  4. CIPROFLOXACIN [Suspect]
     Active Substance: CIPROFLOXACIN
     Indication: Catheter site infection
  5. SULFAMETHOXAZOLE\TRIMETHOPRIM [Suspect]
     Active Substance: SULFAMETHOXAZOLE\TRIMETHOPRIM
     Indication: Serratia infection
  6. SULFAMETHOXAZOLE\TRIMETHOPRIM [Suspect]
     Active Substance: SULFAMETHOXAZOLE\TRIMETHOPRIM
     Indication: Pseudomonas infection
  7. SULFAMETHOXAZOLE\TRIMETHOPRIM [Suspect]
     Active Substance: SULFAMETHOXAZOLE\TRIMETHOPRIM
     Indication: Medical device site infection
  8. SULFAMETHOXAZOLE\TRIMETHOPRIM [Suspect]
     Active Substance: SULFAMETHOXAZOLE\TRIMETHOPRIM
     Indication: Catheter site infection
  9. FAROPENEM [Suspect]
     Active Substance: FAROPENEM
     Indication: Serratia infection
  10. FAROPENEM [Suspect]
     Active Substance: FAROPENEM
     Indication: Pseudomonas infection
  11. FAROPENEM [Suspect]
     Active Substance: FAROPENEM
     Indication: Medical device site infection
  12. FAROPENEM [Suspect]
     Active Substance: FAROPENEM
     Indication: Catheter site infection

REACTIONS (3)
  - Peritonitis [None]
  - Drug hypersensitivity [None]
  - Catheter site infection [None]
